FAERS Safety Report 13823139 (Version 1)
Quarter: 2017Q3

REPORT INFORMATION
  Report Type: Spontaneous
  Country: BR (occurrence: BR)
  Receive Date: 20170801
  Receipt Date: 20170801
  Transmission Date: 20171127
  Serious: Yes (Other)
  Sender: FDA-Public Use
  Company Number: BR-ROCHE-1968306

PATIENT
  Age: 77 Year
  Sex: Female

DRUGS (2)
  1. RIVOTRIL [Suspect]
     Active Substance: CLONAZEPAM
     Indication: SLEEP DISORDER
     Route: 060
  2. VALIUM [Suspect]
     Active Substance: DIAZEPAM
     Indication: PRODUCT USED FOR UNKNOWN INDICATION
     Route: 065

REACTIONS (7)
  - Incorrect route of drug administration [Unknown]
  - Diarrhoea [Unknown]
  - Depression [Unknown]
  - Off label use [Unknown]
  - Intentional product use issue [Unknown]
  - Systemic lupus erythematosus [Unknown]
  - Cataract [Unknown]
